FAERS Safety Report 6072322-2 (Version None)
Quarter: 2009Q1

REPORT INFORMATION
  Report Type: 
  Country: None (occurrence: None)
  Receive Date: 20090210
  Receipt Date: 20090130
  Transmission Date: 20090719
  Serious: Yes (Other)
  Sender: FDA-Public Use
  Company Number: PHHY2008JP31767

PATIENT
  Age: 60 Year
  Sex: Male

DRUGS (2)
  1. NEORAL [Suspect]
     Indication: INTERSTITIAL LUNG DISEASE
     Dosage: 100 MG/DAY
     Route: 048
  2. PREDONINE [Suspect]
     Indication: INTERSTITIAL LUNG DISEASE
     Dosage: 100 MG/DAY
     Route: 048

REACTIONS (5)
  - ACUTE RESPIRATORY FAILURE [None]
  - INTERSTITIAL LUNG DISEASE [None]
  - MYCOPLASMA INFECTION [None]
  - PNEUMOCYSTIS JIROVECI PNEUMONIA [None]
  - PSITTACOSIS [None]
